FAERS Safety Report 5677283-3 (Version None)
Quarter: 2008Q1

REPORT INFORMATION
  Report Type: 
  Country: None (occurrence: None)
  Receive Date: 20080320
  Receipt Date: 20080320
  Transmission Date: 20080703
  Serious: Yes (Other)
  Sender: FDA-Public Use
  Company Number: None

PATIENT
  Sex: Male
  Weight: 52.2 kg

DRUGS (1)
  1. PROLEUKIN [Suspect]
     Indication: CHEMOTHERAPY

REACTIONS (11)
  - ANURIA [None]
  - BLOOD CREATININE INCREASED [None]
  - DIARRHOEA [None]
  - FLUID RETENTION [None]
  - HYPOTENSION [None]
  - METABOLIC ENCEPHALOPATHY [None]
  - MUCOSAL INFLAMMATION [None]
  - NAUSEA [None]
  - PAIN [None]
  - TACHYCARDIA [None]
  - VOMITING [None]
